FAERS Safety Report 7972690-8 (Version None)
Quarter: 2011Q4

REPORT INFORMATION
  Report Type: 
  Country: None (occurrence: None)
  Receive Date: 20111213
  Receipt Date: 20111129
  Transmission Date: 20120403
  Serious: Yes (Hospitalization)
  Sender: FDA-Public Use
  Company Number: GB-ROCHE-1020959

PATIENT
  Sex: Female

DRUGS (3)
  1. ANTIHISTAMINE NOS [Concomitant]
  2. XOLAIR [Suspect]
     Indication: PRODUCT USED FOR UNKNOWN INDICATION
     Route: 065
  3. PREDNISOLONE [Concomitant]

REACTIONS (2)
  - ASTHMA [None]
  - INJECTION SITE MASS [None]
